FAERS Safety Report 10146686 (Version 1)
Quarter: 2014Q2

REPORT INFORMATION
  Report Type: Spontaneous
  Country: US (occurrence: US)
  Receive Date: 20140501
  Receipt Date: 20140501
  Transmission Date: 20141212
  Serious: No
  Sender: FDA-Public Use
  Company Number: US-PFIZER INC-2014119251

PATIENT
  Age: 55 Year
  Sex: Female
  Weight: 92.97 kg

DRUGS (3)
  1. CHANTIX [Suspect]
     Indication: EX-TOBACCO USER
     Dosage: UNK
     Dates: start: 20140422
  2. AMITRIPTYLINE [Concomitant]
     Indication: PAIN IN EXTREMITY
     Dosage: 25 MG, DAILY
  3. FLUOXETINE [Concomitant]
     Indication: DEPRESSION
     Dosage: 20 MG, DAILY

REACTIONS (3)
  - Hypersomnia [Unknown]
  - Nervousness [Unknown]
  - Feeling jittery [Unknown]
